FAERS Safety Report 13581084 (Version 1)
Quarter: 2017Q2

REPORT INFORMATION
  Report Type: Spontaneous
  Country: US (occurrence: US)
  Receive Date: 20170525
  Receipt Date: 20170525
  Transmission Date: 20170830
  Serious: Yes (Hospitalization, Disabling)
  Sender: FDA-Public Use
  Company Number: None

PATIENT
  Age: 45 Year
  Sex: Female
  Weight: 56.25 kg

DRUGS (1)
  1. CIPROFLOXICIN [Suspect]
     Active Substance: CIPROFLOXACIN
     Indication: URINARY TRACT INFECTION
     Route: 048
     Dates: start: 20080505, end: 20080514

REACTIONS (11)
  - Gastrointestinal disorder [None]
  - Hepatic enzyme increased [None]
  - Vitreous detachment [None]
  - Arthralgia [None]
  - Blood glucose abnormal [None]
  - Psychotic disorder [None]
  - Vitreous floaters [None]
  - Neuropathy peripheral [None]
  - Tendon disorder [None]
  - Cardiac disorder [None]
  - Anxiety [None]

NARRATIVE: CASE EVENT DATE: 20080506
